FAERS Safety Report 18294172 (Version 1)
Quarter: 2020Q3

REPORT INFORMATION
  Report Type: Spontaneous
  Country: US (occurrence: US)
  Receive Date: 20200922
  Receipt Date: 20200922
  Transmission Date: 20201103
  Serious: No
  Sender: FDA-Public Use
  Company Number: None

PATIENT
  Age: 52 Year
  Sex: Female
  Weight: 88.2 kg

DRUGS (16)
  1. DULOXETINE. [Suspect]
     Active Substance: DULOXETINE
     Indication: PAIN
     Dosage: ?          QUANTITY:1 CAPSULE(S);?
     Route: 048
  2. TRAMADOL. [Concomitant]
     Active Substance: TRAMADOL
  3. HYOSCYAMINE. [Concomitant]
     Active Substance: HYOSCYAMINE
  4. CIMETHICONE [Concomitant]
  5. METRONDIAZOLE 500 MG [Concomitant]
     Active Substance: METRONIDAZOLE
  6. BACLOFEN. [Concomitant]
     Active Substance: BACLOFEN
  7. VITAMIN D2 [Concomitant]
     Active Substance: ERGOCALCIFEROL
  8. TOPIRAMATE. [Concomitant]
     Active Substance: TOPIRAMATE
  9. OMEPRAZOLE. [Concomitant]
     Active Substance: OMEPRAZOLE
  10. TUMS [Concomitant]
     Active Substance: CALCIUM CARBONATE
  11. TRIAMTERENE HCTZ [Concomitant]
     Active Substance: HYDROCHLOROTHIAZIDE\TRIAMTERENE
  12. FAMOTIDINE. [Concomitant]
     Active Substance: FAMOTIDINE
  13. ONDANSETRON [Concomitant]
     Active Substance: ONDANSETRON
  14. CELEBREX [Concomitant]
     Active Substance: CELECOXIB
  15. BIOTENE NOS [Concomitant]
     Active Substance: CETYLPYRIDINIUM CHLORIDE OR SODIUM FLUORIDE OR SODIUM MONOFLUOROPHOSPHATE OR GLUCOSE OXIDASE\LACTOFERRIN\LACTOPEROXIDASE BOVINE\LYSOZYME
  16. LORATADINE. [Concomitant]
     Active Substance: LORATADINE

REACTIONS (13)
  - Hypoaesthesia [None]
  - Fatigue [None]
  - Musculoskeletal stiffness [None]
  - Arthralgia [None]
  - Memory impairment [None]
  - Crying [None]
  - Taste disorder [None]
  - Nausea [None]
  - Periarthritis [None]
  - Aphasia [None]
  - Balance disorder [None]
  - Contusion [None]
  - Gait inability [None]

NARRATIVE: CASE EVENT DATE: 20200601
